FAERS Safety Report 15081671 (Version 1)
Quarter: 2018Q2

REPORT INFORMATION
  Report Type: Spontaneous
  Country: GB (occurrence: GB)
  Receive Date: 20180628
  Receipt Date: 20180628
  Transmission Date: 20180711
  Serious: Yes (Other)
  Sender: FDA-Public Use
  Company Number: PHHY2018GB029344

PATIENT
  Sex: Female

DRUGS (1)
  1. BISOPROLOL SANDOZ [Suspect]
     Active Substance: BISOPROLOL
     Indication: AORTIC VALVE REPLACEMENT
     Dosage: 1.25 MG, UNK
     Route: 065

REACTIONS (2)
  - Deafness [Unknown]
  - Rhinorrhoea [Unknown]
